FAERS Safety Report 7732445-6 (Version None)
Quarter: 2011Q3

REPORT INFORMATION
  Report Type: 
  Country: None (occurrence: None)
  Receive Date: 20110906
  Receipt Date: 20110826
  Transmission Date: 20111222
  Serious: Yes (Other)
  Sender: FDA-Public Use
  Company Number: US-ASTRAZENECA-2011SE31126

PATIENT
  Sex: Male

DRUGS (9)
  1. GLIPIZIDE [Concomitant]
  2. LISINOPRIL [Concomitant]
  3. METFORMIN HCL [Concomitant]
  4. DIAZEPAM [Concomitant]
  5. CRESTOR [Suspect]
     Route: 048
  6. GEMFIBROZIL [Concomitant]
  7. ATENOLOL [Concomitant]
  8. NEXIUM [Suspect]
     Route: 048
  9. HYDROCHLOROTHIAZIDE [Concomitant]

REACTIONS (3)
  - DRUG HYPERSENSITIVITY [None]
  - MYALGIA [None]
  - BARRETT'S OESOPHAGUS [None]
